FAERS Safety Report 9452589 (Version 1)
Quarter: 2013Q3

REPORT INFORMATION
  Report Type: Spontaneous
  Country: US (occurrence: US)
  Receive Date: 20130812
  Receipt Date: 20130812
  Transmission Date: 20140515
  Serious: Yes (Hospitalization)
  Sender: FDA-Public Use
  Company Number: US-PFIZER INC-2013231857

PATIENT
  Age: 59 Year
  Sex: Male
  Weight: 87.53 kg

DRUGS (3)
  1. FLECTOR [Suspect]
     Indication: FIBROMYALGIA
     Dosage: UNK
     Dates: start: 2012
  2. FLECTOR [Suspect]
     Indication: BACK PAIN
  3. FLECTOR [Suspect]
     Indication: PAIN

REACTIONS (3)
  - Chest pain [Unknown]
  - Dyspepsia [Unknown]
  - Off label use [Unknown]
